FAERS Safety Report 18569570 (Version 6)
Quarter: 2022Q4

REPORT INFORMATION
  Report Type: Report from Study
  Country: FR (occurrence: FR)
  Receive Date: 20201202
  Receipt Date: 20221123
  Transmission Date: 20230113
  Serious: Yes (Hospitalization)
  Sender: FDA-Public Use
  Company Number: NVSC2020FR313278

PATIENT
  Age: 26 Year
  Sex: Female

DRUGS (6)
  1. SECUKINUMAB [Suspect]
     Active Substance: SECUKINUMAB
     Indication: Hidradenitis
     Dosage: UNK
     Route: 058
     Dates: start: 20201007
  2. SECUKINUMAB [Suspect]
     Active Substance: SECUKINUMAB
     Indication: Hidradenitis
     Dosage: UNK
     Route: 058
  3. FOSFOMYCIN [Concomitant]
     Active Substance: FOSFOMYCIN
     Indication: Pyelonephritis
     Dosage: UNK
     Route: 065
     Dates: start: 20201102, end: 20201102
  4. OFLOXACIN [Concomitant]
     Active Substance: OFLOXACIN
     Indication: Pyelonephritis
     Dosage: UNK
     Route: 065
     Dates: start: 20201103, end: 20201110
  5. MIRTAZAPINE [Concomitant]
     Active Substance: MIRTAZAPINE
     Indication: Anxiety
     Dosage: UNK
     Route: 065
     Dates: start: 20201103, end: 20201118
  6. EOSTRADIOL [Concomitant]
     Indication: General physical condition
     Dosage: UNK
     Route: 065
     Dates: start: 20190101, end: 20210122

REACTIONS (1)
  - Syncope [Not Recovered/Not Resolved]

NARRATIVE: CASE EVENT DATE: 20201118
